FAERS Safety Report 7711673-X (Version None)
Quarter: 2011Q3

REPORT INFORMATION
  Report Type: 
  Country: None (occurrence: None)
  Receive Date: 20110826
  Receipt Date: 20110720
  Transmission Date: 20111222
  Serious: No
  Sender: FDA-Public Use
  Company Number: US-BRISTOL-MYERS SQUIBB COMPANY-15914161

PATIENT
  Age: 69 Year
  Sex: Male

DRUGS (2)
  1. ONGLYZA [Suspect]
     Dosage: ABOUT 6-7 MONTHS AGO
  2. GLIPIZIDE [Concomitant]

REACTIONS (1)
  - DRUG INEFFECTIVE [None]
